FAERS Safety Report 4360378-4 (Version None)
Quarter: 2004Q2

REPORT INFORMATION
  Report Type: 
  Country: None (occurrence: None)
  Receive Date: 20040517
  Receipt Date: 20040428
  Transmission Date: 20050107
  Serious: Yes (Other)
  Sender: FDA-Public Use
  Company Number: CAO04000688

PATIENT
  Age: 71 Year
  Sex: Female

DRUGS (3)
  1. PEPTO-BISMOL, FLAVOR UNKNOWN (BISMUTH SUBSALICYLATE 262 MG, CALCIUM CA [Suspect]
     Dosage: FOR 1 DAY, ORAL
     Route: 048
     Dates: start: 20040414, end: 20040414
  2. DILANTIN [Concomitant]
  3. CARDIAC THERAPY [Concomitant]

REACTIONS (6)
  - ABDOMINAL PAIN [None]
  - CIRCULATORY COLLAPSE [None]
  - DEHYDRATION [None]
  - DIARRHOEA [None]
  - FAECES DISCOLOURED [None]
  - TONGUE DISCOLOURATION [None]
